FAERS Safety Report 8539722-X (Version None)
Quarter: 2012Q3

REPORT INFORMATION
  Report Type: 
  Country: None (occurrence: None)
  Receive Date: 20120726
  Receipt Date: 20120315
  Transmission Date: 20120928
  Serious: No
  Sender: FDA-Public Use
  Company Number: US-ASTRAZENECA-2008UW25524

PATIENT
  Age: 52 Year
  Sex: Female

DRUGS (15)
  1. SEROQUEL [Suspect]
     Indication: STRESS
     Route: 048
     Dates: start: 20020101
  2. SEROQUEL [Suspect]
     Route: 048
  3. SEROQUEL [Suspect]
     Indication: AGORAPHOBIA
     Route: 048
     Dates: start: 20020101
  4. SEROQUEL [Suspect]
     Route: 048
  5. SEROQUEL [Suspect]
     Route: 048
  6. SEROQUEL [Suspect]
     Dosage: 600 IN MORNING AND 600 MG AT NIGHT
     Route: 048
  7. SEROQUEL [Suspect]
     Indication: ANXIETY
     Route: 048
     Dates: start: 20020101
  8. SEROQUEL [Suspect]
     Route: 048
  9. SEROQUEL [Suspect]
     Dosage: 600 IN MORNING AND 600 MG AT NIGHT
     Route: 048
  10. SEROQUEL [Suspect]
     Indication: BIPOLAR DISORDER
     Route: 048
     Dates: start: 20020101
  11. SEROQUEL [Suspect]
     Indication: POST-TRAUMATIC STRESS DISORDER
     Route: 048
     Dates: start: 20020101
  12. SEROQUEL [Suspect]
     Route: 048
  13. SEROQUEL [Suspect]
     Dosage: 600 IN MORNING AND 600 MG AT NIGHT
     Route: 048
  14. SEROQUEL [Suspect]
     Dosage: 600 IN MORNING AND 600 MG AT NIGHT
     Route: 048
  15. SEROQUEL [Suspect]
     Dosage: 600 IN MORNING AND 600 MG AT NIGHT
     Route: 048

REACTIONS (12)
  - NAUSEA [None]
  - ORAL INFECTION [None]
  - EPISTAXIS [None]
  - MIGRAINE [None]
  - MENOPAUSAL SYMPTOMS [None]
  - BLOOD CHOLESTEROL INCREASED [None]
  - DYSPEPSIA [None]
  - VOMITING [None]
  - FATIGUE [None]
  - OFF LABEL USE [None]
  - HOT FLUSH [None]
  - WEIGHT INCREASED [None]
